FAERS Safety Report 7042340-6 (Version None)
Quarter: 2010Q4

REPORT INFORMATION
  Report Type: 
  Country: None (occurrence: None)
  Receive Date: 20101013
  Receipt Date: 20090914
  Transmission Date: 20110411
  Serious: No
  Sender: FDA-Public Use
  Company Number: US-ASTRAZENECA-2009SE13047

PATIENT
  Age: 28804 Day
  Sex: Female
  Weight: 65.8 kg

DRUGS (9)
  1. SYMBICORT [Suspect]
     Indication: CHRONIC OBSTRUCTIVE PULMONARY DISEASE
     Dosage: 80-4.5 2 PUFFS
     Route: 055
     Dates: start: 20090813, end: 20090826
  2. SYMBICORT [Suspect]
     Dosage: 160-4.5  2 PUFFS
     Route: 055
     Dates: start: 20090827, end: 20090910
  3. SYMBICORT [Suspect]
     Dosage: 160-4.5  1 PUFFS
     Route: 055
     Dates: start: 20090910
  4. IPRATROPRIUM BROMIDE [Concomitant]
     Indication: CHRONIC OBSTRUCTIVE PULMONARY DISEASE
     Route: 055
     Dates: start: 20060101
  5. ALBUTEROL [Concomitant]
     Indication: CHRONIC OBSTRUCTIVE PULMONARY DISEASE
     Route: 055
     Dates: start: 20060101
  6. COMBIVENT [Concomitant]
     Indication: CHRONIC OBSTRUCTIVE PULMONARY DISEASE
     Dosage: PRN
     Route: 055
     Dates: start: 19990101
  7. ASPIRIN [Concomitant]
  8. CALCIUM [Concomitant]
  9. ALBUTEROL INHALER [Concomitant]
     Dosage: PRN
     Route: 055

REACTIONS (5)
  - CHEST DISCOMFORT [None]
  - DYSPNOEA [None]
  - FATIGUE [None]
  - INCREASED UPPER AIRWAY SECRETION [None]
  - PNEUMONIA [None]
